FAERS Safety Report 8541275-7 (Version None)
Quarter: 2012Q3

REPORT INFORMATION
  Report Type: 
  Country: None (occurrence: None)
  Receive Date: 20120726
  Receipt Date: 20120719
  Transmission Date: 20120928
  Serious: Yes (Other)
  Sender: FDA-Public Use
  Company Number: IL-GLAXOSMITHKLINE-B0816747A

PATIENT
  Sex: Female
  Weight: 63 kg

DRUGS (3)
  1. RESPRIM [Concomitant]
     Dosage: 800MG TWO TIMES PER WEEK
     Route: 048
  2. OFATUMUMAB [Suspect]
     Indication: CHRONIC LYMPHOCYTIC LEUKAEMIA
     Route: 042
  3. ZOVIRAX [Concomitant]
     Indication: PROPHYLAXIS
     Dosage: 400MG PER DAY
     Route: 048
     Dates: start: 20110101

REACTIONS (1)
  - LARYNGEAL OEDEMA [None]
